FAERS Safety Report 23276095 (Version 1)
Quarter: 2023Q4

REPORT INFORMATION
  Report Type: Spontaneous
  Country: US (occurrence: None)
  Receive Date: 20231207
  Receipt Date: 20231207
  Transmission Date: 20240109
  Serious: Yes (Hospitalization)
  Sender: FDA-Public Use
  Company Number: None

PATIENT
  Sex: Female

DRUGS (7)
  1. GAMMAGARD LIQUID [Suspect]
     Active Substance: HUMAN IMMUNOGLOBULIN G
     Indication: Immunodeficiency common variable
     Dosage: 20GM/250M EVERY WEEK IV? ?
     Route: 042
     Dates: start: 202202
  2. GAMMAGARD LIQUID [Suspect]
     Active Substance: HUMAN IMMUNOGLOBULIN G
     Indication: Immunodeficiency common variable
  3. GAMMAGARD LIQUID [Suspect]
     Active Substance: HUMAN IMMUNOGLOBULIN G
     Indication: Immunodeficiency common variable
     Dosage: 25GM (250ML) WEEKLY IV? ?
     Route: 042
     Dates: start: 202202
  4. GAMMAGARD LIQUID [Suspect]
     Active Substance: HUMAN IMMUNOGLOBULIN G
     Indication: Immunodeficiency common variable
  5. SODIUM CHLOR [Concomitant]
  6. DUPIXENT [Concomitant]
     Active Substance: DUPILUMAB
  7. TALTZ PF AUTO INJ [Concomitant]

REACTIONS (3)
  - Pericardial effusion [None]
  - Hepatomegaly [None]
  - Therapy interrupted [None]
